FAERS Safety Report 4525269-4 (Version None)
Quarter: 2004Q4

REPORT INFORMATION
  Report Type: 
  Country: None (occurrence: None)
  Receive Date: 20041213
  Receipt Date: 20041202
  Transmission Date: 20050328
  Serious: Yes (Hospitalization, Disabling)
  Sender: FDA-Public Use
  Company Number: DE-ROCHE-388160

PATIENT
  Age: 76 Year
  Sex: Female

DRUGS (4)
  1. IBANDRONIC ACID [Suspect]
     Indication: MULTIPLE MYELOMA
     Route: 042
     Dates: start: 20031208, end: 20041014
  2. DEXAMETHASONE [Suspect]
     Indication: MULTIPLE MYELOMA
     Dosage: GIVEN DAILY FOR FOUR FOLLOWING DAYS EVERY 14 DAYS.
     Route: 048
     Dates: start: 20031208, end: 20041014
  3. RANITIDINE [Concomitant]
  4. ARIMIDEX [Concomitant]

REACTIONS (4)
  - JAW DISORDER [None]
  - MEDICAL DEVICE COMPLICATION [None]
  - OSTEOMYELITIS [None]
  - OSTEONECROSIS [None]
